FAERS Safety Report 9201050 (Version 1)
Quarter: 2013Q2

REPORT INFORMATION
  Report Type: Spontaneous
  Country: US (occurrence: US)
  Receive Date: 20130401
  Receipt Date: 20130401
  Transmission Date: 20140414
  Serious: No
  Sender: FDA-Public Use
  Company Number: US-BAYER-2013-039016

PATIENT
  Sex: Female
  Weight: 63.49 kg

DRUGS (7)
  1. BETASERON [Suspect]
     Dosage: 0.3 MG, QOD
     Route: 058
  2. ALENDRONATE SODIUM [Concomitant]
     Dosage: 10 MG, UNK
  3. LISINOPRIL [Concomitant]
     Dosage: 10 MG, UNK
  4. WELLBUTRIN [Concomitant]
     Dosage: 75 MG, UNK
  5. OXYBUTYNIN [Concomitant]
     Dosage: 5 MG, UNK
  6. CALCIUM WITH VITAMIN D [Concomitant]
  7. VITAMIN D3 [Concomitant]
     Dosage: 1000 U, UNK

REACTIONS (3)
  - Injection site mass [Unknown]
  - Fatigue [Unknown]
  - Pain [Unknown]
